FAERS Safety Report 7586603-4 (Version None)
Quarter: 2011Q3

REPORT INFORMATION
  Report Type: 
  Country: None (occurrence: None)
  Receive Date: 20110701
  Receipt Date: 20110616
  Transmission Date: 20111222
  Serious: Yes (Hospitalization, Other)
  Sender: FDA-Public Use
  Company Number: DE-BAYER-200915049GPV

PATIENT
  Age: 30 Year
  Sex: Female
  Weight: 78 kg

DRUGS (1)
  1. ASPIRIN [Suspect]
     Indication: TOOTHACHE
     Dosage: 2 TO 3 TABLETS PER DAY ON 18-NOV-2008 AND 19-NOV-2008, 30 TABS FROM 19-NOV 19:00 TO 20-NOV-2008 1:00
     Route: 048
     Dates: start: 20081118, end: 20081120

REACTIONS (6)
  - HEARING IMPAIRED [None]
  - NAUSEA [None]
  - DIZZINESS [None]
  - TOXICITY TO VARIOUS AGENTS [None]
  - VOMITING [None]
  - TINNITUS [None]
